FAERS Safety Report 26148528 (Version 2)
Quarter: 2025Q4

REPORT INFORMATION
  Report Type: Report from Study
  Country: BR (occurrence: BR)
  Receive Date: 20251212
  Receipt Date: 20251226
  Transmission Date: 20260118
  Serious: No
  Sender: BIOGEN
  Company Number: BR-BIOGEN-2094297

PATIENT
  Age: 34 Year
  Sex: Female
  Weight: 74 kg

DRUGS (1)
  1. TYSABRI [Suspect]
     Active Substance: NATALIZUMAB
     Indication: Relapsing-remitting multiple sclerosis
     Dosage: THE PATIENT CONTINUES TO USE NATALIZUMAB.
     Dates: start: 20251103

REACTIONS (1)
  - Hypersensitivity [Recovered/Resolved]

NARRATIVE: CASE EVENT DATE: 20251203
